FAERS Safety Report 10994695 (Version 2)
Quarter: 2015Q2

REPORT INFORMATION
  Report Type: Spontaneous
  Country: US (occurrence: US)
  Receive Date: 20150407
  Receipt Date: 20150420
  Transmission Date: 20150821
  Serious: No
  Sender: FDA-Public Use
  Company Number: US-PFIZER INC-2015117418

PATIENT
  Age: 69 Year
  Sex: Female

DRUGS (1)
  1. CELECOXIB. [Suspect]
     Active Substance: CELECOXIB
     Indication: RHEUMATOID ARTHRITIS
     Dosage: 200 MG, 2X/DAY

REACTIONS (5)
  - Abdominal discomfort [Unknown]
  - Drug ineffective [Unknown]
  - Feeling abnormal [Unknown]
  - Swelling [Unknown]
  - Joint stiffness [Unknown]
